FAERS Safety Report 11252061 (Version 1)
Quarter: 2015Q3

REPORT INFORMATION
  Report Type: Spontaneous
  Country: US (occurrence: US)
  Receive Date: 20150708
  Receipt Date: 20150708
  Transmission Date: 20151125
  Serious: Yes (Other)
  Sender: FDA-Public Use
  Company Number: US-ELI_LILLY_AND_COMPANY-US201212006113

PATIENT
  Sex: Male
  Weight: 82.09 kg

DRUGS (17)
  1. DECADRON [Concomitant]
     Active Substance: DEXAMETHASONE
     Dosage: 4 MG, TID
     Route: 048
  2. FOLIC ACID. [Concomitant]
     Active Substance: FOLIC ACID
     Dosage: 1 MG, QD
     Route: 048
     Dates: start: 20120502, end: 20121129
  3. ROFLUMILAST [Concomitant]
     Active Substance: ROFLUMILAST
     Dosage: 500 UG, QD
     Route: 048
  4. PROSCAR [Concomitant]
     Active Substance: FINASTERIDE
     Dosage: 5 MG, QD
     Route: 048
  5. SINGULAIR [Concomitant]
     Active Substance: MONTELUKAST SODIUM
     Dosage: 10 MG, QD
     Route: 048
  6. ADVAIR DISKUS [Concomitant]
     Active Substance: FLUTICASONE PROPIONATE\SALMETEROL XINAFOATE
     Route: 055
  7. ALIMTA [Suspect]
     Active Substance: PEMETREXED DISODIUM
     Indication: LUNG NEOPLASM MALIGNANT
     Dosage: 990 MG, OTHER
     Route: 042
     Dates: start: 20120508
  8. CIALIS [Concomitant]
     Active Substance: TADALAFIL
     Dosage: 20 MG, PRN
     Route: 048
  9. DECADRON [Concomitant]
     Active Substance: DEXAMETHASONE
     Indication: SUPPLEMENTATION THERAPY
     Dosage: 12 MG, UNK
     Route: 042
     Dates: start: 20120508
  10. VITAMIN B12 [Concomitant]
     Active Substance: CYANOCOBALAMIN
     Dosage: 1000 UG, UNK
     Route: 030
     Dates: start: 20120502, end: 20121114
  11. RAPAFLO [Concomitant]
     Active Substance: SILODOSIN
     Dosage: 8 MG, QD
  12. TOBREX [Concomitant]
     Active Substance: TOBRAMYCIN
  13. SPIRIVA [Concomitant]
     Active Substance: TIOTROPIUM BROMIDE MONOHYDRATE
     Dosage: 18 UG, UNK
     Route: 055
  14. ALIMTA [Suspect]
     Active Substance: PEMETREXED DISODIUM
     Dosage: 970 MG, OTHER
     Route: 042
     Dates: start: 20120910, end: 20121106
  15. LISINOPRIL. [Concomitant]
     Active Substance: LISINOPRIL
     Dosage: 20 MG, QD
     Route: 048
  16. ALBUTEROL. [Concomitant]
     Active Substance: ALBUTEROL
     Dosage: 108 UG, UNK
     Route: 055
  17. GRANISETRON [Concomitant]
     Active Substance: GRANISETRON
     Indication: SUPPLEMENTATION THERAPY

REACTIONS (1)
  - Malignant neoplasm progression [Not Recovered/Not Resolved]
